FAERS Safety Report 16534374 (Version 1)
Quarter: 2019Q3

REPORT INFORMATION
  Report Type: Spontaneous
  Country: US (occurrence: US)
  Receive Date: 20190704
  Receipt Date: 20190704
  Transmission Date: 20191004
  Serious: Yes (Other)
  Sender: FDA-Public Use
  Company Number: None

PATIENT
  Age: 29 Year
  Sex: Female
  Weight: 51.75 kg

DRUGS (1)
  1. LACTULOSE. [Suspect]
     Active Substance: LACTULOSE
     Indication: SKIN FISSURES
     Dosage: ?          QUANTITY:1 TABLESPOON(S);?
     Route: 048
     Dates: start: 20190601

REACTIONS (7)
  - Eructation [None]
  - Abdominal distension [None]
  - Insomnia [None]
  - Confusional state [None]
  - Asthenia [None]
  - Feeling jittery [None]
  - Flatulence [None]

NARRATIVE: CASE EVENT DATE: 20190704
